FAERS Safety Report 18542803 (Version 4)
Quarter: 2021Q1

REPORT INFORMATION
  Report Type: Spontaneous
  Country: FR (occurrence: FR)
  Receive Date: 20201124
  Receipt Date: 20210216
  Transmission Date: 20210419
  Serious: Yes (Other)
  Sender: FDA-Public Use
  Company Number: FR-009507513-2011FRA013600

PATIENT
  Age: 20 Year
  Sex: Female
  Weight: 53 kg

DRUGS (1)
  1. NEXPLANON [Suspect]
     Active Substance: ETONOGESTREL
     Dosage: 1 IMPLANT IN THE RIGHT ARM (RIGHT HANDED PERSON)
     Route: 059
     Dates: start: 20191203

REACTIONS (8)
  - Metrorrhagia [Not Recovered/Not Resolved]
  - Surgery [Unknown]
  - Complication associated with device [Recovered/Resolved]
  - Device monitoring procedure not performed [Unknown]
  - Complication of device removal [Recovered/Resolved]
  - Device placement issue [Recovered/Resolved]
  - Thoracotomy [Unknown]
  - Device embolisation [Recovered/Resolved]

NARRATIVE: CASE EVENT DATE: 20191203
